FAERS Safety Report 19183404 (Version 1)
Quarter: 2021Q2

REPORT INFORMATION
  Report Type: Spontaneous
  Country: US (occurrence: US)
  Receive Date: 20210427
  Receipt Date: 20210427
  Transmission Date: 20210717
  Serious: No
  Sender: FDA-Public Use
  Company Number: US-DRREDDYS-USA/USA/21/0134708

PATIENT
  Age: 22 Year
  Sex: Female

DRUGS (1)
  1. ZENATANE [Suspect]
     Active Substance: ISOTRETINOIN
     Indication: ACNE
     Dosage: 1 CAPSULE MY MOUTH DAILY, ALTERNATING 2 CAPSULES ORALLY EVERY OTHER DAY.
     Route: 048
     Dates: start: 202103

REACTIONS (1)
  - Product dose omission issue [Unknown]
